FAERS Safety Report 4642476-0 (Version None)
Quarter: 2005Q2

REPORT INFORMATION
  Report Type: 
  Country: None (occurrence: None)
  Receive Date: 20050422
  Receipt Date: 20050131
  Transmission Date: 20051028
  Serious: Yes (Hospitalization)
  Sender: FDA-Public Use
  Company Number: US-MERCK-0502USA00113

PATIENT
  Age: 68 Year
  Sex: Male
  Weight: 84 kg

DRUGS (8)
  1. VIOXX [Suspect]
     Indication: BACK PAIN
     Route: 048
     Dates: start: 20010801, end: 20040901
  2. ZOCOR [Concomitant]
     Route: 048
  3. GLUCOPHAGE XR [Concomitant]
     Route: 048
  4. ECOTRIN [Concomitant]
     Route: 048
  5. TRENTAL [Concomitant]
     Route: 048
  6. HUMALOG [Concomitant]
     Route: 058
  7. SYNTHROID [Concomitant]
     Route: 048
  8. LIPITOR [Concomitant]
     Route: 065

REACTIONS (20)
  - AGITATION [None]
  - AORTIC ATHEROSCLEROSIS [None]
  - ASTHENIA [None]
  - BLOOD GLUCOSE INCREASED [None]
  - CAROTID ARTERY ATHEROMA [None]
  - CAROTID ARTERY STENOSIS [None]
  - CEREBRAL INFARCTION [None]
  - CEREBROVASCULAR ACCIDENT [None]
  - CONFUSIONAL STATE [None]
  - CONVULSION [None]
  - DILATATION ATRIAL [None]
  - DIZZINESS [None]
  - FACIAL NEURALGIA [None]
  - GAIT DISTURBANCE [None]
  - HEADACHE [None]
  - HEMIANOPIA HOMONYMOUS [None]
  - NEPHROPATHY [None]
  - SCAR [None]
  - TRICUSPID VALVE INCOMPETENCE [None]
  - VENTRICULAR HYPERTROPHY [None]
